FAERS Safety Report 5094019-8 (Version None)
Quarter: 2006Q3

REPORT INFORMATION
  Report Type: 
  Country: None (occurrence: None)
  Receive Date: 20060728
  Receipt Date: 20060427
  Transmission Date: 20061208
  Serious: No
  Sender: FDA-Public Use
  Company Number: 252884

PATIENT
  Age: 73 Year
  Sex: Female

DRUGS (4)
  1. LEVEMIR [Suspect]
     Indication: INSULIN-REQUIRING TYPE II DIABETES MELLITUS
     Dosage: SUBCUTANEOUS
     Route: 058
     Dates: start: 20060418
  2. AVAPRO [Concomitant]
  3. NORVASC [Concomitant]
  4. ATENOLOL [Concomitant]

REACTIONS (2)
  - ALOPECIA [None]
  - BLOOD GLUCOSE INCREASED [None]
